FAERS Safety Report 22073986 (Version 1)
Quarter: 2023Q1

REPORT INFORMATION
  Report Type: Spontaneous
  Country: US (occurrence: US)
  Receive Date: 20230308
  Receipt Date: 20230308
  Transmission Date: 20230417
  Serious: No
  Sender: FDA-Public Use
  Company Number: US-BRISTOL-MYERS SQUIBB COMPANY-2023-033692

PATIENT
  Sex: Male
  Weight: 73.48 kg

DRUGS (1)
  1. POMALYST [Suspect]
     Active Substance: POMALIDOMIDE
     Indication: Bone cancer
     Dosage: FREQ : 21 DAYS ON AND 7 DAYS OFF AND INFUSION EVERY 6 WEEKS
     Route: 048

REACTIONS (3)
  - Abdominal pain upper [Unknown]
  - Pain [Unknown]
  - Dyspnoea [Unknown]
